FAERS Safety Report 9314016 (Version 3)
Quarter: 2013Q4

REPORT INFORMATION
  Report Type: Spontaneous
  Country: IT (occurrence: IT)
  Receive Date: 20130529
  Receipt Date: 20131011
  Transmission Date: 20140711
  Serious: Yes (Hospitalization)
  Sender: FDA-Public Use
  Company Number: IT-ROCHE-1228756

PATIENT
  Age: 51 Year
  Sex: Female

DRUGS (3)
  1. ROACTEMRA [Suspect]
     Indication: RHEUMATOID ARTHRITIS
     Dosage: DATE OF LAST DOSE:28/DEC/2012
     Route: 042
     Dates: start: 20100601
  2. LEFLUNOMIDE [Concomitant]
     Route: 048
  3. DELTACORTENE [Concomitant]
     Route: 048

REACTIONS (3)
  - Malignant melanoma [Recovered/Resolved]
  - Visual field defect [Recovered/Resolved]
  - Visual impairment [Recovered/Resolved]
